FAERS Safety Report 9565510 (Version 1)
Quarter: 2013Q3

REPORT INFORMATION
  Report Type: Spontaneous
  Country: US (occurrence: US)
  Receive Date: 20130930
  Receipt Date: 20130930
  Transmission Date: 20140515
  Serious: Yes (Other)
  Sender: FDA-Public Use
  Company Number: US-ROCHE-1281406

PATIENT
  Sex: Female

DRUGS (3)
  1. PEGASYS [Suspect]
     Indication: CHRONIC HEPATITIS C
     Dosage: PROCLICK
     Route: 058
     Dates: start: 20130909
  2. COPEGUS [Suspect]
     Indication: CHRONIC HEPATITIS C
     Dosage: (IN TWO DIVIDED DOSES)
     Route: 048
     Dates: start: 20130909
  3. TELAPREVIR [Suspect]
     Indication: CHRONIC HEPATITIS C
     Route: 065
     Dates: start: 20130909

REACTIONS (6)
  - Nausea [Unknown]
  - Diarrhoea [Unknown]
  - Pyrexia [Unknown]
  - Haemorrhoids [Unknown]
  - Vomiting [Unknown]
  - Haemorrhoidal haemorrhage [Unknown]
